FAERS Safety Report 9828733 (Version 2)
Quarter: 2014Q1

REPORT INFORMATION
  Report Type: Spontaneous
  Country: ES (occurrence: ES)
  Receive Date: 20140117
  Receipt Date: 20140129
  Transmission Date: 20141002
  Serious: Yes (Other)
  Sender: FDA-Public Use
  Company Number: PHHY2014ES003842

PATIENT
  Age: 55 Year
  Sex: Male

DRUGS (1)
  1. HYDROCHLOROTHIAZIDE [Suspect]
     Indication: HYPERTENSION
     Dosage: 50 MG, PER DAY

REACTIONS (7)
  - Pemphigoid [Recovering/Resolving]
  - Dermatitis bullous [Recovering/Resolving]
  - Pruritus [Recovering/Resolving]
  - Urticaria [Recovering/Resolving]
  - Skin lesion [Recovering/Resolving]
  - Prurigo [Recovering/Resolving]
  - Blister [Recovering/Resolving]
